FAERS Safety Report 9995998 (Version 1)
Quarter: 2014Q1

REPORT INFORMATION
  Report Type: Spontaneous
  Country: US (occurrence: None)
  Receive Date: 20140310
  Receipt Date: 20140310
  Transmission Date: 20141002
  Serious: Yes (Other)
  Sender: FDA-Public Use
  Company Number: None

PATIENT
  Age: 83 Year
  Sex: Female
  Weight: 70.31 kg

DRUGS (17)
  1. QUETIAPINE [Suspect]
     Indication: DEPRESSION
     Dosage: 25 MG?2 IN THE MORNING?2 AT NOON?1 AT BEDTIME
     Route: 048
     Dates: start: 20140206, end: 20140217
  2. ALPRAZOLAM [Concomitant]
  3. CRESTOR [Concomitant]
  4. DILT-OD [Concomitant]
  5. DIGOXIN [Concomitant]
  6. ESCITALPRAM [Concomitant]
  7. LISINOPRIL [Concomitant]
  8. DRAMAMINE [Concomitant]
  9. TYLENOL ARTHRITIS [Concomitant]
  10. GASBXP [Concomitant]
  11. MUNVIEX [Concomitant]
  12. CITRIGEL, [Concomitant]
  13. BENADRYL [Concomitant]
  14. VITMAIN 75+ [Concomitant]
  15. LINDOCAINE PATCH 5% [Concomitant]
  16. ROPINIROLE [Concomitant]
  17. BENZANATE [Concomitant]

REACTIONS (4)
  - Pruritus [None]
  - Rash [None]
  - Erythema [None]
  - Product quality issue [None]
